FAERS Safety Report 9307827 (Version 2)
Quarter: 2013Q3

REPORT INFORMATION
  Report Type: Report from Study
  Country: CA (occurrence: CA)
  Receive Date: 20130524
  Receipt Date: 20130712
  Transmission Date: 20140515
  Serious: Yes (Life-Threatening, Hospitalization)
  Sender: FDA-Public Use
  Company Number: CA-ROCHE-1139298

PATIENT
  Age: 32 Year
  Sex: Female
  Weight: 76 kg

DRUGS (8)
  1. ACTEMRA [Suspect]
     Indication: RHEUMATOID ARTHRITIS
     Route: 042
     Dates: start: 20120829
  2. VOLTAREN [Concomitant]
     Dosage: AS NEEDED
     Route: 065
  3. ARAVA [Concomitant]
     Route: 065
  4. CELEBREX [Concomitant]
     Dosage: AS NEEDED
     Route: 065
  5. PREVACID [Concomitant]
  6. VENTOLIN [Concomitant]
  7. ADVAIR [Concomitant]
  8. PROVERA [Concomitant]

REACTIONS (6)
  - Anaphylactic reaction [Recovering/Resolving]
  - Vertigo [Recovered/Resolved]
  - Chest discomfort [Recovered/Resolved]
  - Headache [Recovered/Resolved]
  - Tooth infection [Recovering/Resolving]
  - Rhinitis allergic [Not Recovered/Not Resolved]
